FAERS Safety Report 5265110-8 (Version None)
Quarter: 2007Q1

REPORT INFORMATION
  Report Type: 
  Country: None (occurrence: None)
  Receive Date: 20061122
  Receipt Date: 20061002
  Transmission Date: 20070707
  Serious: Yes (Other)
  Sender: FDA-Public Use
  Company Number: US-JNJFOC-20061000837

PATIENT
  Age: 57 Year
  Weight: 108.8633 kg

DRUGS (1)
  1. RISPERDAL CONSTA [Suspect]
     Indication: SCHIZOPHRENIA
     Dosage: 50 MG, 1 IN 2 WEEK; INTRAMUSCULAR
     Route: 030
     Dates: start: 20060701

REACTIONS (1)
  - WEIGHT DECREASED [None]
